FAERS Safety Report 22202798 (Version 1)
Quarter: 2023Q2

REPORT INFORMATION
  Report Type: Spontaneous
  Country: FR (occurrence: FR)
  Receive Date: 20230412
  Receipt Date: 20230412
  Transmission Date: 20230721
  Serious: Yes (Life-Threatening)
  Sender: FDA-Public Use
  Company Number: None

PATIENT
  Age: 52 Year
  Sex: Female

DRUGS (5)
  1. PROPOFOL [Suspect]
     Active Substance: PROPOFOL
     Indication: Anaesthesia
     Dosage: DOSAGE NOT REPORTED
     Route: 042
     Dates: start: 20211223, end: 20211223
  2. CEFAZOLIN SODIUM [Suspect]
     Active Substance: CEFAZOLIN SODIUM
     Indication: Antibiotic prophylaxis
     Route: 042
     Dates: start: 20211223, end: 20211223
  3. KETAMINE [Suspect]
     Active Substance: KETAMINE
     Indication: Anaesthesia
     Dosage: DOSAGE NOT REPORTED
     Route: 042
     Dates: start: 20211223, end: 20211223
  4. TRACRIUM [Suspect]
     Active Substance: ATRACURIUM BESYLATE
     Indication: Anaesthesia
     Dosage: DOSAGE NOT REPORTED
     Route: 042
     Dates: start: 20211223, end: 20211223
  5. SUFENTANIL [Suspect]
     Active Substance: SUFENTANIL
     Indication: Anaesthesia
     Dosage: DOSAGE NOT REPORTED
     Route: 042
     Dates: start: 20211223, end: 20211223

REACTIONS (1)
  - Anaphylactic shock [Recovered/Resolved]

NARRATIVE: CASE EVENT DATE: 20211223
